FAERS Safety Report 5855620-4 (Version None)
Quarter: 2008Q3

REPORT INFORMATION
  Report Type: 
  Country: None (occurrence: None)
  Receive Date: 20080821
  Receipt Date: 20080807
  Transmission Date: 20090109
  Serious: Yes (Hospitalization, Other)
  Sender: FDA-Public Use
  Company Number: 237086J08USA

PATIENT
  Age: 32 Year
  Sex: Female
  Weight: 150 kg

DRUGS (5)
  1. REBIF [Suspect]
     Indication: MULTIPLE SCLEROSIS
     Dosage: 44 MCG, 3 IN 1 WEEKS, SUBCUTANEOUS
     Route: 058
     Dates: start: 20071010
  2. TLENOL (COTYLENOL) [Concomitant]
  3. LEXAPRO [Concomitant]
  4. PROVIGIL [Concomitant]
  5. LEVOTHROID [Concomitant]

REACTIONS (2)
  - DYSMENORRHOEA [None]
  - MENOMETRORRHAGIA [None]
